FAERS Safety Report 13703151 (Version 1)
Quarter: 2017Q2

REPORT INFORMATION
  Report Type: Spontaneous
  Country: US (occurrence: US)
  Receive Date: 20170629
  Receipt Date: 20170629
  Transmission Date: 20170830
  Serious: Yes (Hospitalization)
  Sender: FDA-Public Use
  Company Number: US-PFIZER INC-2017277170

PATIENT
  Age: 66 Year
  Sex: Female
  Weight: 43 kg

DRUGS (1)
  1. XALKORI [Suspect]
     Active Substance: CRIZOTINIB
     Indication: METASTASES TO MENINGES
     Dosage: 250 MG, 2X/DAY
     Dates: start: 20170607, end: 201706

REACTIONS (9)
  - Oral discharge [Recovering/Resolving]
  - Mouth haemorrhage [Recovering/Resolving]
  - Product use in unapproved indication [Unknown]
  - Dehydration [Unknown]
  - Product use complaint [Recovering/Resolving]
  - Product quality issue [Recovering/Resolving]
  - Oral disorder [Recovering/Resolving]
  - Oral discomfort [Recovering/Resolving]
  - Swelling face [Unknown]

NARRATIVE: CASE EVENT DATE: 201706
